FAERS Safety Report 11067967 (Version 1)
Quarter: 2015Q2

REPORT INFORMATION
  Report Type: Report from Study
  Country: CA (occurrence: CA)
  Receive Date: 20150427
  Receipt Date: 20150427
  Transmission Date: 20150821
  Serious: Yes (Other)
  Sender: FDA-Public Use
  Company Number: CA-ROCHE-1566915

PATIENT
  Sex: Male
  Weight: 135 kg

DRUGS (9)
  1. METHYLPREDNISOLONE. [Concomitant]
     Active Substance: METHYLPREDNISOLONE
     Indication: PREMEDICATION
     Route: 042
     Dates: start: 20150401
  2. AVASTIN [Suspect]
     Active Substance: BEVACIZUMAB
     Indication: MESOTHELIOMA
     Route: 042
     Dates: start: 20150401
  3. HYDROMORPHONE [Concomitant]
     Active Substance: HYDROMORPHONE
  4. FOLIC ACID. [Concomitant]
     Active Substance: FOLIC ACID
  5. BENADRYL [Suspect]
     Active Substance: DIPHENHYDRAMINE HYDROCHLORIDE
     Indication: PREMEDICATION
     Route: 048
     Dates: start: 20150401
  6. HYDROMORPH CONTIN [Concomitant]
     Active Substance: HYDROMORPHONE
  7. VITAMIN B12 [Concomitant]
     Active Substance: CYANOCOBALAMIN
     Route: 065
  8. DEXAMETHASONE. [Concomitant]
     Active Substance: DEXAMETHASONE
  9. ACETAMINOPHEN. [Concomitant]
     Active Substance: ACETAMINOPHEN
     Indication: PREMEDICATION
     Route: 048
     Dates: start: 20150401

REACTIONS (3)
  - Heart rate increased [Unknown]
  - Somnolence [Unknown]
  - Off label use [Unknown]
